FAERS Safety Report 6271344-6 (Version None)
Quarter: 2009Q3

REPORT INFORMATION
  Report Type: 
  Country: None (occurrence: None)
  Receive Date: 20090716
  Receipt Date: 20090716
  Transmission Date: 20100115
  Serious: Yes (Other)
  Sender: FDA-Public Use
  Company Number: None

PATIENT
  Age: 44 Year
  Sex: Female
  Weight: 67.1324 kg

DRUGS (1)
  1. FLUTICASONE PROPIONATE [Suspect]
     Indication: SEASONAL ALLERGY
     Dosage: 1 OR 2 SPRAYS FOR 5 DAYS NOSE
     Route: 045
     Dates: start: 20090605, end: 20090609

REACTIONS (4)
  - DIPLOPIA [None]
  - IMPAIRED DRIVING ABILITY [None]
  - OPTIC NERVE DISORDER [None]
  - VISION BLURRED [None]
